FAERS Safety Report 9464318 (Version 1)
Quarter: 2013Q3

REPORT INFORMATION
  Report Type: Report from Study
  Country: BR (occurrence: BR)
  Receive Date: 20130819
  Receipt Date: 20130819
  Transmission Date: 20140515
  Serious: Yes (Other)
  Sender: FDA-Public Use
  Company Number: PHHY2013BR088584

PATIENT
  Sex: Female
  Weight: 47.1 kg

DRUGS (3)
  1. EXELON [Suspect]
     Indication: DEMENTIA ALZHEIMER^S TYPE
     Dosage: 2 TABLETS PER DAY
     Route: 048
     Dates: end: 2012
  2. TRILEPTAL [Suspect]
     Indication: CONVULSION
     Dosage: 1 TABLET PER DAY
     Route: 048
     Dates: start: 2007
  3. TRILEPTAL [Suspect]
     Dosage: UNK

REACTIONS (2)
  - Eating disorder [Recovered/Resolved]
  - Depression [Recovered/Resolved]
